FAERS Safety Report 7319944-6 (Version None)
Quarter: 2011Q1

REPORT INFORMATION
  Report Type: 
  Country: None (occurrence: None)
  Receive Date: 20110228
  Receipt Date: 20101221
  Transmission Date: 20110831
  Serious: No
  Sender: FDA-Public Use
  Company Number: A0900995A

PATIENT
  Age: 18 Year
  Sex: Male

DRUGS (3)
  1. LAMICTAL [Suspect]
     Indication: BIPOLAR DISORDER
     Dosage: 400MG PER DAY
     Route: 048
     Dates: start: 20090101
  2. SEROQUEL [Concomitant]
  3. BUSPAR [Concomitant]

REACTIONS (1)
  - DRUG SCREEN POSITIVE [None]
